FAERS Safety Report 7540882-8 (Version None)
Quarter: 2011Q2

REPORT INFORMATION
  Report Type: 
  Country: None (occurrence: None)
  Receive Date: 20110610
  Receipt Date: 20110527
  Transmission Date: 20111010
  Serious: Yes (Other)
  Sender: FDA-Public Use
  Company Number: A0928385A

PATIENT
  Age: 23 Year
  Sex: Female
  Weight: 52.3 kg

DRUGS (1)
  1. NICODERM [Suspect]
     Indication: SMOKING CESSATION THERAPY
     Dosage: 21MG PER DAY
     Route: 062
     Dates: start: 20110426

REACTIONS (5)
  - DRUG INEFFECTIVE [None]
  - NICOTINE DEPENDENCE [None]
  - HOMICIDAL IDEATION [None]
  - NAUSEA [None]
  - IRRITABILITY [None]
